FAERS Safety Report 23575617 (Version 1)
Quarter: 2024Q1

REPORT INFORMATION
  Report Type: Spontaneous
  Country: US (occurrence: US)
  Receive Date: 20240228
  Receipt Date: 20240228
  Transmission Date: 20240410
  Serious: No
  Sender: FDA-Public Use
  Company Number: US-BRISTOL-MYERS SQUIBB COMPANY-2024-031193

PATIENT
  Age: 56 Year
  Sex: Female

DRUGS (2)
  1. ORENCIA [Suspect]
     Active Substance: ABATACEPT
     Indication: Arthropathy
     Route: 058
     Dates: start: 201801
  2. ORENCIA [Suspect]
     Active Substance: ABATACEPT
     Indication: Psoriatic arthropathy

REACTIONS (2)
  - Erythema [Unknown]
  - Pruritus [Unknown]

NARRATIVE: CASE EVENT DATE: 20240101
